FAERS Safety Report 7612029-0 (Version None)
Quarter: 2011Q3

REPORT INFORMATION
  Report Type: 
  Country: None (occurrence: None)
  Receive Date: 20110715
  Receipt Date: 20110701
  Transmission Date: 20111222
  Serious: Yes (Hospitalization, Other)
  Sender: FDA-Public Use
  Company Number: US-AMGEN-USASP2011034051

PATIENT
  Age: 50 Year
  Sex: Female

DRUGS (3)
  1. TREXALL [Concomitant]
     Dosage: 3 MG, QWK
  2. ENBREL [Suspect]
     Indication: RHEUMATOID ARTHRITIS
     Dosage: 25 MG, 3 TIMES/WK
  3. PLAQUENIL [Concomitant]
     Dosage: 1 MG, QD

REACTIONS (4)
  - BREAST CANCER [None]
  - RHEUMATOID ARTHRITIS [None]
  - OPEN WOUND [None]
  - WOUND DEHISCENCE [None]
